FAERS Safety Report 25754385 (Version 2)
Quarter: 2025Q3

REPORT INFORMATION
  Report Type: Report from Study
  Country: KR (occurrence: KR)
  Receive Date: 20250903
  Receipt Date: 20250919
  Transmission Date: 20251020
  Serious: Yes (Hospitalization, Other)
  Sender: CELLTRION
  Company Number: KR-CELLTRION INC.-2025KR030908

PATIENT

DRUGS (20)
  1. BEVACIZUMAB-ADCD [Suspect]
     Active Substance: BEVACIZUMAB-ADCD
     Indication: Colorectal cancer metastatic
     Dosage: 256.5 MG, Q2W (PATIENT WEIGHT: 51.3 KG)
     Route: 042
     Dates: start: 20250124, end: 20250826
  2. BEVACIZUMAB-ADCD [Suspect]
     Active Substance: BEVACIZUMAB-ADCD
     Dosage: 248 MG, Q2W (PATIENT WEIGHT: 49.6 KG)
     Route: 042
     Dates: start: 20250211, end: 20250826
  3. BEVACIZUMAB-ADCD [Suspect]
     Active Substance: BEVACIZUMAB-ADCD
     Dosage: 255 MG, Q2W (PATIENT WEIGHT: 51 KG)
     Route: 042
     Dates: start: 20250226, end: 20250826
  4. BEVACIZUMAB-ADCD [Suspect]
     Active Substance: BEVACIZUMAB-ADCD
     Dosage: 253.2 MG, Q2W (PATIENT WEIGHT: 50.7 KG)
     Route: 042
     Dates: start: 20250314, end: 20250826
  5. BEVACIZUMAB-ADCD [Suspect]
     Active Substance: BEVACIZUMAB-ADCD
     Dosage: 253.5 MG, Q2W (PATIENT WEIGHT: 50.7 KG)
     Route: 042
     Dates: start: 20250401, end: 20250826
  6. BEVACIZUMAB-ADCD [Suspect]
     Active Substance: BEVACIZUMAB-ADCD
     Dosage: 253.5 MG, Q2W (PATIENT WEIGHT: 50.7 KG)
     Route: 042
     Dates: start: 20250418, end: 20250826
  7. BEVACIZUMAB-ADCD [Suspect]
     Active Substance: BEVACIZUMAB-ADCD
     Dosage: 255 MG, Q2W (PATIENT WEIGHT: 51 KG)
     Route: 042
     Dates: start: 20250514, end: 20250826
  8. BEVACIZUMAB-ADCD [Suspect]
     Active Substance: BEVACIZUMAB-ADCD
     Dosage: 251.5 MG, Q2W (PATIENT WEIGHT: 50.3 KG)
     Route: 042
     Dates: start: 20250529, end: 20250826
  9. BEVACIZUMAB-ADCD [Suspect]
     Active Substance: BEVACIZUMAB-ADCD
     Dosage: 250 MG, Q2W (PATIENT WEIGHT: 50 KG)
     Route: 042
     Dates: start: 20250613, end: 20250826
  10. BEVACIZUMAB-ADCD [Suspect]
     Active Substance: BEVACIZUMAB-ADCD
     Dosage: 251 MG, Q2W (PATIENT WEIGHT: 50.2 KG)
     Route: 042
     Dates: start: 20250627, end: 20250826
  11. BEVACIZUMAB-ADCD [Suspect]
     Active Substance: BEVACIZUMAB-ADCD
     Dosage: 246 MG, Q2W (PATIENT WEIGHT: 49.2 KG)
     Route: 042
     Dates: start: 20250712, end: 20250826
  12. BEVACIZUMAB-ADCD [Suspect]
     Active Substance: BEVACIZUMAB-ADCD
     Dosage: 244 MG, Q2W (PATIENT WEIGHT: 48.8 KG)
     Route: 042
     Dates: start: 20250726, end: 20250826
  13. BEVACIZUMAB-ADCD [Suspect]
     Active Substance: BEVACIZUMAB-ADCD
     Dosage: 243.5 MG, Q2W (PATIENT WEIGHT: 48.7 KG)
     Route: 042
     Dates: start: 20250812, end: 20250826
  14. BEVACIZUMAB-ADCD [Suspect]
     Active Substance: BEVACIZUMAB-ADCD
     Dosage: 240 MG, Q2W (PATIENT WEIGHT: 48 KG)
     Route: 042
     Dates: start: 20250826, end: 20250826
  15. POSPENEM [Concomitant]
     Indication: Sepsis
     Route: 042
     Dates: start: 20250127, end: 20250210
  16. VANCO KIT [Concomitant]
     Indication: Sepsis
     Route: 042
     Dates: start: 20250201, end: 20250209
  17. WITHUS CEFIXIME [Concomitant]
     Indication: Pyrexia
     Route: 048
     Dates: start: 20250508, end: 20250516
  18. WITHUS CEFIXIME [Concomitant]
     Indication: Ileus
  19. UMECLIDINIUM BROMIDE\VILANTEROL TRIFENATATE [Concomitant]
     Active Substance: UMECLIDINIUM BROMIDE\VILANTEROL TRIFENATATE
     Indication: Chronic obstructive pulmonary disease
     Dates: start: 2025
  20. HARNAL [Concomitant]
     Active Substance: TAMSULOSIN HYDROCHLORIDE
     Indication: Benign prostatic hyperplasia
     Route: 048
     Dates: start: 2025

REACTIONS (6)
  - Anaphylactic shock [Recovered/Resolved]
  - Ileus [Recovered/Resolved]
  - Neutropenia [Recovered/Resolved]
  - Allodynia [Not Recovered/Not Resolved]
  - Decreased appetite [Recovering/Resolving]
  - Hypertension [Recovered/Resolved]

NARRATIVE: CASE EVENT DATE: 20250208
